FAERS Safety Report 4640979-6 (Version None)
Quarter: 2005Q2

REPORT INFORMATION
  Report Type: 
  Country: None (occurrence: None)
  Receive Date: 20050421
  Receipt Date: 20050407
  Transmission Date: 20051028
  Serious: Yes (Hospitalization)
  Sender: FDA-Public Use
  Company Number: FR-BOEHRINGER INGELHEIM PHARMACEUTICALS, INC.-2005-DE-01461GL

PATIENT
  Age: 58 Year
  Sex: Female

DRUGS (4)
  1. TELMISARTAN [Suspect]
     Indication: HYPERTENSION
     Route: 048
     Dates: start: 20030101, end: 20050401
  2. GINKOR FORT [Suspect]
     Indication: VENOUS INSUFFICIENCY
     Route: 065
     Dates: start: 20050322, end: 20050328
  3. ESBERIVEN [Concomitant]
     Dates: start: 20050105
  4. HERBAL MEDICATION [Concomitant]

REACTIONS (5)
  - ANTINUCLEAR ANTIBODY POSITIVE [None]
  - ARTHRALGIA [None]
  - AUTOIMMUNE DISORDER [None]
  - HAEMATOMA [None]
  - THROMBOCYTOPENIC PURPURA [None]
